FAERS Safety Report 17008373 (Version 1)
Quarter: 2019Q4

REPORT INFORMATION
  Report Type: Spontaneous
  Country: GB (occurrence: GB)
  Receive Date: 20191108
  Receipt Date: 20191108
  Transmission Date: 20200122
  Serious: Yes (Disabling)
  Sender: FDA-Public Use
  Company Number: GB-ACCORD-160163

PATIENT
  Age: 46 Year
  Sex: Male

DRUGS (14)
  1. LORATADINE. [Concomitant]
     Active Substance: LORATADINE
  2. DIAZEPAM. [Concomitant]
     Active Substance: DIAZEPAM
  3. AMLODIPINE [Concomitant]
     Active Substance: AMLODIPINE BESYLATE
  4. DIHYDROCODEINE [Concomitant]
     Active Substance: DIHYDROCODEINE
  5. COLECALCIFEROL [Concomitant]
     Active Substance: CHOLECALCIFEROL
  6. LAMOTRIGINE. [Concomitant]
     Active Substance: LAMOTRIGINE
  7. PERINDOPRIL [Concomitant]
     Active Substance: PERINDOPRIL
  8. METOCLOPRAMIDE. [Concomitant]
     Active Substance: METOCLOPRAMIDE
  9. PARACETAMOL [Concomitant]
     Active Substance: ACETAMINOPHEN
  10. ETODOLAC. [Concomitant]
     Active Substance: ETODOLAC
  11. NAPROXEN. [Concomitant]
     Active Substance: NAPROXEN
  12. TOPIRAMATE. [Suspect]
     Active Substance: TOPIRAMATE
     Indication: EPILEPSY
     Dosage: WITH VIEW TO INCREASE TO 50MG ONCE DAILY AFTER TWO WEEKS
     Route: 048
     Dates: start: 20171121, end: 20171124
  13. LAXIDO [Concomitant]
     Active Substance: POLYETHYLENE GLYCOL 3350\POTASSIUM CHLORIDE\SODIUM BICARBONATE\SODIUM CHLORIDE
  14. THIAMINE. [Concomitant]
     Active Substance: THIAMINE

REACTIONS (6)
  - Vision blurred [Recovering/Resolving]
  - Emotional disorder [Unknown]
  - Visual field defect [Recovering/Resolving]
  - Eye pain [Recovering/Resolving]
  - Metamorphopsia [Recovering/Resolving]
  - Visual impairment [Recovering/Resolving]

NARRATIVE: CASE EVENT DATE: 20171122
